FAERS Safety Report 10015472 (Version 1)
Quarter: 2014Q1

REPORT INFORMATION
  Report Type: Spontaneous
  Country: IN (occurrence: IN)
  Receive Date: 20140317
  Receipt Date: 20140317
  Transmission Date: 20141002
  Serious: Yes (Other)
  Sender: FDA-Public Use
  Company Number: IN-ASTRAZENECA-2014SE16349

PATIENT
  Age: 32 Year
  Sex: Male

DRUGS (9)
  1. LIGNOCAINE [Suspect]
     Indication: NERVE BLOCK
     Route: 053
  2. LIGNOCAINE [Suspect]
     Indication: NERVE BLOCK
     Route: 053
  3. LIGNOCAINE [Suspect]
     Indication: NERVE BLOCK
     Route: 053
  4. LIGNOCAINE [Suspect]
     Indication: NERVE BLOCK
     Route: 053
  5. LIGNOCAINE [Suspect]
     Indication: NERVE BLOCK
     Route: 053
  6. LIGNOCAINE [Suspect]
     Indication: NERVE BLOCK
     Route: 053
  7. LIGNOCAINE [Suspect]
     Indication: NERVE BLOCK
     Route: 053
  8. LIGNOCAINE [Suspect]
     Indication: NERVE BLOCK
     Route: 053
  9. LIGNOCAINE [Suspect]
     Indication: NERVE BLOCK
     Route: 053

REACTIONS (1)
  - Amaurosis [Recovered/Resolved]
